FAERS Safety Report 7901814-3 (Version None)
Quarter: 2011Q4

REPORT INFORMATION
  Report Type: 
  Country: None (occurrence: None)
  Receive Date: 20111108
  Receipt Date: 20111031
  Transmission Date: 20120403
  Serious: Yes (Hospitalization, Other)
  Sender: FDA-Public Use
  Company Number: PHHY2011US68583

PATIENT
  Sex: Male

DRUGS (6)
  1. GLIPIZIDE [Concomitant]
     Dosage: UNK UKN, UNK
  2. CELEXA [Concomitant]
     Dosage: UNK UKN, UNK
  3. EXJADE [Suspect]
     Indication: APLASIA PURE RED CELL
     Dosage: 1500 MG, DAILY
     Route: 048
     Dates: start: 20101229, end: 20110501
  4. EXJADE [Suspect]
     Dosage: 1500 MG, DAILY
     Route: 048
  5. ACTOS [Concomitant]
     Dosage: UNK UKN, UNK
  6. SYNTHROID [Concomitant]
     Dosage: UNK UKN, UNK

REACTIONS (1)
  - PNEUMONIA [None]
